FAERS Safety Report 20557700 (Version 3)
Quarter: 2022Q2

REPORT INFORMATION
  Report Type: Spontaneous
  Country: FR (occurrence: FR)
  Receive Date: 20220307
  Receipt Date: 20220604
  Transmission Date: 20220721
  Serious: Yes (Hospitalization, Disabling, Other)
  Sender: FDA-Public Use
  Company Number: FR-ALLERGAN-FR-SA-SAC20210727000197

PATIENT
  Sex: Female
  Weight: 45 kg

DRUGS (29)
  1. AMOXICILLIN [Suspect]
     Active Substance: AMOXICILLIN
     Indication: Product used for unknown indication
     Dosage: UNK
     Route: 065
  2. BOTOX [Suspect]
     Active Substance: ONABOTULINUMTOXINA
     Indication: Product used for unknown indication
     Dosage: UNK (SINGLE)
     Route: 065
  3. ESTRADIOL BENZOATE [Suspect]
     Active Substance: ESTRADIOL BENZOATE
     Indication: Product used for unknown indication
     Dosage: UNK
     Route: 065
  4. CHLORMADINONE ACETATE [Suspect]
     Active Substance: CHLORMADINONE ACETATE
     Indication: Endometriosis
     Dosage: 1 DOSAGE FORM, ONCE A DAY (20 DAYS IN MONTH)
     Route: 065
  5. CHLORMADINONE ACETATE [Suspect]
     Active Substance: CHLORMADINONE ACETATE
     Dosage: 5 MILLIGRAM
     Route: 065
     Dates: start: 19940304
  6. CHLORMADINONE ACETATE [Suspect]
     Active Substance: CHLORMADINONE ACETATE
     Dosage: 5 MILLIGRAM
     Route: 065
     Dates: start: 19940730, end: 19941110
  7. CHLORMADINONE ACETATE [Suspect]
     Active Substance: CHLORMADINONE ACETATE
     Dosage: 5 MILLIGRAM
     Route: 065
     Dates: start: 19950126
  8. CHLORMADINONE ACETATE [Suspect]
     Active Substance: CHLORMADINONE ACETATE
     Dosage: 5 MILLIGRAM
     Route: 065
     Dates: start: 20000929, end: 20071221
  9. CHLORMADINONE ACETATE [Suspect]
     Active Substance: CHLORMADINONE ACETATE
     Dosage: 10 MILLIGRAM
     Route: 065
     Dates: start: 20010715, end: 20190228
  10. CHLORMADINONE ACETATE [Suspect]
     Active Substance: CHLORMADINONE ACETATE
     Dosage: 10 MILLIGRAM (20 DAYS/MONTH)
     Route: 065
     Dates: start: 20080715
  11. CHLORMADINONE ACETATE [Suspect]
     Active Substance: CHLORMADINONE ACETATE
     Dosage: 10 MILLIGRAM
     Route: 065
     Dates: start: 20121004
  12. CHLORMADINONE ACETATE [Suspect]
     Active Substance: CHLORMADINONE ACETATE
     Dosage: 5 MILLIGRAM
     Route: 058
     Dates: start: 20180509
  13. CHLORMADINONE ACETATE [Suspect]
     Active Substance: CHLORMADINONE ACETATE
     Dosage: 10 MILLIGRAM
     Route: 065
     Dates: start: 20190203, end: 20190228
  14. NOMEGESTROL ACETATE [Suspect]
     Active Substance: NOMEGESTROL ACETATE
     Indication: Product used for unknown indication
     Dosage: UNK
     Route: 065
  15. BISOPROLOL FUMARATE [Concomitant]
     Active Substance: BISOPROLOL FUMARATE
     Indication: Product used for unknown indication
     Dosage: UNK (MORNING: 1)
     Route: 065
  16. DESOGESTREL [Concomitant]
     Active Substance: DESOGESTREL
     Indication: Product used for unknown indication
     Dosage: UNK
     Route: 065
  17. CHLORMADINONE ACETATE [Concomitant]
     Active Substance: CHLORMADINONE ACETATE
     Indication: Product used for unknown indication
     Dosage: 5 MILLIGRAM
     Route: 065
  18. COLOPRIV [Concomitant]
     Indication: Product used for unknown indication
     Dosage: 600 MILLIGRAM, ONCE A DAY(200 MG, TID)
     Route: 065
  19. ESTRADIOL [Concomitant]
     Active Substance: ESTRADIOL
     Indication: Product used for unknown indication
     Dosage: UNK
     Route: 065
  20. EUTHYROX [Concomitant]
     Active Substance: LEVOTHYROXINE SODIUM
     Indication: Product used for unknown indication
     Dosage: UNK
     Route: 065
  21. BIMATOPROST\TIMOLOL [Concomitant]
     Active Substance: BIMATOPROST\TIMOLOL
     Indication: Product used for unknown indication
     Dosage: UNK
     Route: 065
  22. GYDRELLE [Concomitant]
     Indication: Product used for unknown indication
     Dosage: UNK
     Route: 065
  23. KARDEGIC [Concomitant]
     Active Substance: ASPIRIN DL-LYSINE
     Indication: Headache
     Dosage: 75 MILLIGRAM
     Route: 065
  24. MICARDIS [Concomitant]
     Active Substance: TELMISARTAN
     Indication: Product used for unknown indication
     Dosage: UNK
     Route: 065
  25. SERTACONAZOLE NITRATE [Concomitant]
     Active Substance: SERTACONAZOLE NITRATE
     Indication: Product used for unknown indication
     Dosage: UNK
     Route: 065
  26. PRISTINAMYCIN [Concomitant]
     Active Substance: PRISTINAMYCIN
     Indication: Product used for unknown indication
     Dosage: UNK
     Route: 065
  27. RETINALDEHYD [Concomitant]
     Indication: Product used for unknown indication
     Dosage: UNK
     Route: 065
  28. PROMEGESTONE [Concomitant]
     Active Substance: PROMEGESTONE
     Indication: Contraception
     Dosage: UNK
     Route: 065
  29. HYALURONATE SODIUM\TREHALOSE [Concomitant]
     Active Substance: HYALURONATE SODIUM\TREHALOSE
     Indication: Product used for unknown indication
     Dosage: 500 MILLIGRAM
     Route: 065

REACTIONS (78)
  - Abortion [Unknown]
  - Amenorrhoea [Unknown]
  - Balance disorder [Unknown]
  - Breast pain [Unknown]
  - Condition aggravated [Unknown]
  - Deafness [Unknown]
  - Deafness neurosensory [Unknown]
  - Depression [Unknown]
  - Exposure keratitis [Unknown]
  - Facial paralysis [Unknown]
  - Gastrostomy [Unknown]
  - Glaucoma [Unknown]
  - Hemianopia [Unknown]
  - Hyperprolactinaemia [Unknown]
  - Meningioma [Unknown]
  - Nervous system disorder [Unknown]
  - Optic neuropathy [Unknown]
  - Paralysis [Unknown]
  - Phlebitis [Unknown]
  - Retinal vein occlusion [Recovering/Resolving]
  - Thrombosis [Unknown]
  - Tinnitus [Unknown]
  - Upper motor neurone lesion [Unknown]
  - Cerebellar syndrome [Unknown]
  - Hypoacusis [Unknown]
  - Visual impairment [Unknown]
  - Stress at work [Unknown]
  - Dysphagia [Unknown]
  - Dysgeusia [Unknown]
  - Migraine [Unknown]
  - Speech disorder [Unknown]
  - Irritability [Unknown]
  - Tracheal pain [Unknown]
  - Grip strength decreased [Unknown]
  - Headache [Not Recovered/Not Resolved]
  - Attention deficit hyperactivity disorder [Unknown]
  - Mycoplasma infection [Unknown]
  - Fatigue [Unknown]
  - Hypomenorrhoea [Unknown]
  - Endometriosis [Unknown]
  - Eating disorder [Unknown]
  - Vestibular disorder [Unknown]
  - Motor dysfunction [Unknown]
  - Anosmia [Unknown]
  - Menstrual disorder [Unknown]
  - Exposure during pregnancy [Unknown]
  - Weight decreased [Unknown]
  - Visual field defect [Unknown]
  - Dyspareunia [Unknown]
  - Facial asymmetry [Unknown]
  - Ageusia [Unknown]
  - Malaise [Unknown]
  - Insomnia [Unknown]
  - Hormone level abnormal [Unknown]
  - Hypersensitivity [Unknown]
  - Cough [Unknown]
  - Weight increased [Unknown]
  - XIth nerve injury [Recovered/Resolved]
  - Scar [Unknown]
  - Vocal cord paralysis [Unknown]
  - Dysphonia [Unknown]
  - Tracheostomy [Unknown]
  - Fall [Recovered/Resolved]
  - Malnutrition [Unknown]
  - Premenstrual syndrome [Unknown]
  - Asthenia [Unknown]
  - Nystagmus [Unknown]
  - Amnesia [Unknown]
  - Intermenstrual bleeding [Unknown]
  - Taste disorder [Unknown]
  - Tachypnoea [Unknown]
  - Vision blurred [Unknown]
  - Dizziness [Unknown]
  - Pregnancy [Unknown]
  - Nerve injury [Unknown]
  - Meningioma surgery [Unknown]
  - Gait disturbance [Unknown]
  - Surgery [Unknown]

NARRATIVE: CASE EVENT DATE: 20070901
